FAERS Safety Report 6367459-4 (Version None)
Quarter: 2009Q3

REPORT INFORMATION
  Report Type: 
  Country: None (occurrence: None)
  Receive Date: 20090921
  Receipt Date: 20090914
  Transmission Date: 20100115
  Serious: Yes (Life-Threatening)
  Sender: FDA-Public Use
  Company Number: B0593140A

PATIENT
  Age: 9 Year
  Sex: Male

DRUGS (2)
  1. AMOXICILLIN [Suspect]
     Indication: TONSILLITIS
     Route: 048
     Dates: start: 20090902
  2. AMOXICILLIN [Concomitant]
     Route: 048
     Dates: start: 20090902

REACTIONS (5)
  - DYSPNOEA [None]
  - HYPERHIDROSIS [None]
  - PHARYNGEAL OEDEMA [None]
  - RASH ERYTHEMATOUS [None]
  - SWOLLEN TONGUE [None]
